FAERS Safety Report 9768815 (Version 1)
Quarter: 2013Q4

REPORT INFORMATION
  Report Type: Spontaneous
  Country: US (occurrence: US)
  Receive Date: 20131218
  Receipt Date: 20131218
  Transmission Date: 20140711
  Serious: No
  Sender: FDA-Public Use
  Company Number: US-009507513-1312USA005488

PATIENT
  Sex: Female

DRUGS (3)
  1. COZAAR [Suspect]
     Dosage: UNK
     Route: 048
  2. PRINIVIL [Suspect]
     Route: 048
  3. DIOVAN HCT [Concomitant]
     Dosage: UNK
     Dates: start: 2013

REACTIONS (3)
  - Toothache [Unknown]
  - Hypersensitivity [Unknown]
  - Sensitivity of teeth [Unknown]
